FAERS Safety Report 7369616-7 (Version None)
Quarter: 2011Q1

REPORT INFORMATION
  Report Type: 
  Country: None (occurrence: None)
  Receive Date: 20110323
  Receipt Date: 20110315
  Transmission Date: 20110831
  Serious: Yes (Other)
  Sender: FDA-Public Use
  Company Number: CA-MERCK-1103USA02069

PATIENT
  Sex: Female

DRUGS (2)
  1. FOSAVANCE [Suspect]
     Indication: OSTEOPOROSIS
     Route: 048
     Dates: start: 20060101
  2. FOSAMAX [Suspect]
     Indication: OSTEOPOROSIS
     Route: 048
     Dates: start: 19960101

REACTIONS (2)
  - FEMUR FRACTURE [None]
  - UPPER LIMB FRACTURE [None]
